FAERS Safety Report 19307585 (Version 6)
Quarter: 2024Q1

REPORT INFORMATION
  Report Type: Spontaneous
  Country: GB (occurrence: GB)
  Receive Date: 20210526
  Receipt Date: 20240304
  Transmission Date: 20240409
  Serious: Yes (Death, Other)
  Sender: FDA-Public Use
  Company Number: None

PATIENT
  Age: 5 Year
  Sex: Male

DRUGS (6)
  1. CISPLATIN [Suspect]
     Active Substance: CISPLATIN
     Indication: Chemotherapy
     Dates: start: 20191101, end: 20191216
  2. ETOPOSIDE [Suspect]
     Active Substance: ETOPOSIDE
     Indication: Chemotherapy
     Dates: start: 20191101, end: 20191216
  3. VINCRISTINE [Suspect]
     Active Substance: VINCRISTINE
     Indication: Chemotherapy
     Route: 051
     Dates: start: 20191101, end: 20191216
  4. CYCLOPHOSPHAMIDE [Suspect]
     Active Substance: CYCLOPHOSPHAMIDE
     Indication: Chemotherapy
     Dates: start: 20191101, end: 20191216
  5. CARBOPLATIN [Concomitant]
     Active Substance: CARBOPLATIN
  6. THIOTEPA [Concomitant]
     Active Substance: THIOTEPA

REACTIONS (17)
  - Diarrhoea [Unknown]
  - Mouth ulceration [Unknown]
  - Vomiting [Unknown]
  - Acute kidney injury [Unknown]
  - Pain [Unknown]
  - Feeding disorder [Unknown]
  - Malignant neoplasm progression [Unknown]
  - Headache [Unknown]
  - Pancytopenia [Unknown]
  - Seizure [Unknown]
  - Hydrocephalus [Unknown]
  - Neutropenic sepsis [Unknown]
  - Abdominal discomfort [Unknown]
  - Intestinal prolapse [Unknown]
  - Drug ineffective [Unknown]
  - Haemorrhage intracranial [Fatal]
  - Rectal prolapse [Unknown]

NARRATIVE: CASE EVENT DATE: 20191216
